FAERS Safety Report 5440979-2 (Version None)
Quarter: 2007Q3

REPORT INFORMATION
  Report Type: 
  Country: None (occurrence: None)
  Receive Date: 20070831
  Receipt Date: 20070823
  Transmission Date: 20080115
  Serious: Yes (Other)
  Sender: FDA-Public Use
  Company Number: JP-PFIZER INC-2007048233

PATIENT
  Sex: Male
  Weight: 77 kg

DRUGS (4)
  1. EPIRUBICIN HYDROCHLORIDE [Suspect]
     Indication: BLADDER NEOPLASM
     Route: 050
     Dates: start: 20060329, end: 20060406
  2. PANSPORIN [Suspect]
     Route: 042
     Dates: start: 20060329, end: 20060331
  3. ADONA [Concomitant]
     Route: 042
     Dates: start: 20060329, end: 20060331
  4. TRANSAMIN [Concomitant]
     Route: 042
     Dates: start: 20060329, end: 20060331

REACTIONS (2)
  - DRUG HYPERSENSITIVITY [None]
  - TOXIC SKIN ERUPTION [None]
